FAERS Safety Report 9109886 (Version 2)
Quarter: 2013Q1

REPORT INFORMATION
  Report Type: Spontaneous
  Country: JP (occurrence: JP)
  Receive Date: 20130222
  Receipt Date: 20130228
  Transmission Date: 20140127
  Serious: No
  Sender: FDA-Public Use
  Company Number: JP-ASTRAZENECA-2013SE10425

PATIENT
  Age: 58 Year
  Sex: Female

DRUGS (3)
  1. SYMBICORT TURBUHALER [Suspect]
     Indication: ASTHMA
     Dosage: 60 DOSES, 4 DF DAILY
     Route: 055
  2. ONON [Concomitant]
     Dosage: DOSE UNKNOWN
     Route: 065
  3. XYZAL [Concomitant]
     Dosage: DOSE UNKNOWN
     Route: 065

REACTIONS (1)
  - Thyroid function test abnormal [Unknown]
